FAERS Safety Report 9284577 (Version 1)
Quarter: 2013Q2

REPORT INFORMATION
  Report Type: Spontaneous
  Country: FR (occurrence: FR)
  Receive Date: 20130512
  Receipt Date: 20130512
  Transmission Date: 20140414
  Serious: Yes (Life-Threatening)
  Sender: FDA-Public Use
  Company Number: FR-TEVA-402842ISR

PATIENT
  Age: 48 Year
  Sex: Male

DRUGS (4)
  1. DIAZEPAM RATIOPHARM 2 MG [Suspect]
     Dosage: 60 MILLIGRAM DAILY;
     Route: 048
     Dates: end: 20121103
  2. EUCREAS 50MG/1000 MG [Suspect]
     Dosage: 2 TABLET DAILY;
     Route: 048
     Dates: end: 20121103
  3. TERCIAN 25 MG [Suspect]
     Dosage: 25 MILLIGRAM DAILY;
     Route: 048
     Dates: end: 20121103
  4. DIAMICRON [Suspect]
     Dosage: 60 MILLIGRAM DAILY;
     Route: 048
     Dates: end: 20121103

REACTIONS (11)
  - Lactic acidosis [Recovered/Resolved]
  - Poisoning [Recovered/Resolved]
  - Hypothermia [Recovered/Resolved]
  - Shock [Recovered/Resolved]
  - Renal failure [Recovered/Resolved]
  - Hepatocellular injury [Recovered/Resolved]
  - Rhabdomyolysis [Recovered/Resolved]
  - Lung disorder [Recovered/Resolved]
  - Thrombocytopenia [Recovered/Resolved]
  - Bacteraemia [Recovered/Resolved]
  - Suicide attempt [Recovered/Resolved]
